FAERS Safety Report 5528566-9 (Version None)
Quarter: 2007Q4

REPORT INFORMATION
  Report Type: 
  Country: None (occurrence: None)
  Receive Date: 20071123
  Receipt Date: 20071109
  Transmission Date: 20080405
  Serious: No
  Sender: FDA-Public Use
  Company Number: CHNY2007GB03366

PATIENT
  Age: 12 Month
  Sex: Male

DRUGS (1)
  1. OTRIVIN [Suspect]
     Dosage: VIA FALSA

REACTIONS (2)
  - ACCIDENTAL DRUG INTAKE BY CHILD [None]
  - NO ADVERSE DRUG REACTION [None]
